FAERS Safety Report 9025293 (Version 1)
Quarter: 2013Q1

REPORT INFORMATION
  Report Type: Report from Study
  Country: CA (occurrence: CA)
  Receive Date: 20130122
  Receipt Date: 20130122
  Transmission Date: 20140127
  Serious: Yes (Hospitalization, Other)
  Sender: FDA-Public Use
  Company Number: CA-UCBSA-075569

PATIENT
  Age: 63 Year
  Sex: Female
  Weight: 66 kg

DRUGS (11)
  1. CIMZIA [Suspect]
     Indication: RHEUMATOID ARTHRITIS
     Route: 058
     Dates: start: 20121105, end: 20121224
  2. CIMZIA [Suspect]
     Indication: RHEUMATOID ARTHRITIS
     Dosage: EVERY 2 WEEKS X 3
     Route: 058
     Dates: start: 20120928, end: 20121022
  3. PREDNISONE [Concomitant]
     Indication: RHEUMATOID ARTHRITIS
     Route: 048
  4. CEREZYME [Concomitant]
     Indication: GAUCHER^S DISEASE
     Dosage: 3200 UNITS DAILY
     Route: 042
  5. SULFASALAZINE [Concomitant]
     Indication: RHEUMATOID ARTHRITIS
     Route: 048
  6. CANDESARTAN [Concomitant]
     Indication: HYPERTENSION
     Route: 048
  7. CYMBALTA [Concomitant]
     Indication: DEPRESSION
     Route: 048
  8. OXYCONTIN [Concomitant]
     Dosage: 10 MG IR(8/DAY)
  9. OXYNEO [Concomitant]
     Dosage: AS NECESSARY
  10. CLONAZEPAM [Concomitant]
     Dosage: BEDTIME
  11. ZOPICLONE [Concomitant]
     Dosage: BEDTIME

REACTIONS (2)
  - Joint swelling [Recovering/Resolving]
  - Arthralgia [Recovering/Resolving]
